FAERS Safety Report 7555580-4 (Version None)
Quarter: 2011Q2

REPORT INFORMATION
  Report Type: 
  Country: None (occurrence: None)
  Receive Date: 20110617
  Receipt Date: 20060317
  Transmission Date: 20111010
  Serious: Yes (Death, Hospitalization, Other)
  Sender: FDA-Public Use
  Company Number: PHMT2005CA00554

PATIENT
  Sex: Male

DRUGS (18)
  1. DILAUDID [Concomitant]
  2. TYLENOL-500 [Concomitant]
  3. OMEPRAZOLE SODIUM [Concomitant]
  4. SANDOSTATIN LAR [Suspect]
     Indication: CARCINOID TUMOUR
     Dosage: 60 MG, EVERY 2 WEEKS
     Dates: start: 20030120, end: 20060301
  5. SCOPOLAMINE [Concomitant]
     Indication: GASTROINTESTINAL DISORDER
  6. CENTRUM [Concomitant]
  7. EMLA [Concomitant]
  8. MULTI-VITAMINS [Concomitant]
  9. VITAMIN D [Concomitant]
  10. METOPROLOL TARTRATE [Concomitant]
  11. GAVISCON [Concomitant]
  12. COTAZYM [Concomitant]
  13. FUCIDINE CAP [Concomitant]
  14. SODIUM ALGINATE [Concomitant]
  15. FLOMAX [Concomitant]
  16. SYNTHROID [Concomitant]
  17. CELEXA [Concomitant]
  18. PRILOSEC [Concomitant]

REACTIONS (10)
  - OEDEMA PERIPHERAL [None]
  - DECREASED APPETITE [None]
  - SOMNOLENCE [None]
  - BLOOD PRESSURE DECREASED [None]
  - DIARRHOEA [None]
  - INTESTINAL OBSTRUCTION [None]
  - DEATH [None]
  - INFECTION [None]
  - INTESTINAL FUNCTIONAL DISORDER [None]
  - FLUSHING [None]
